FAERS Safety Report 12364707 (Version 1)
Quarter: 2016Q2

REPORT INFORMATION
  Report Type: Not Available
  Country: ES (occurrence: ES)
  Receive Date: 20160512
  Receipt Date: 20160512
  Transmission Date: 20160815
  Serious: Yes (Other)
  Sender: FDA-Public Use
  Company Number: ES-ANIPHARMA-2016-ES-000007

PATIENT
  Age: 74 Year
  Sex: Female

DRUGS (13)
  1. ALPRAZOLAM (NON-SPECIFIC) [Concomitant]
     Active Substance: ALPRAZOLAM
  2. METOCLOPRAMIDE (NON-SPECIFIC) [Suspect]
     Active Substance: METOCLOPRAMIDE
     Dosage: UNKNOWN
     Route: 065
  3. RISEDRONIC ACID [Concomitant]
     Active Substance: RISEDRONIC ACID
  4. AMIODARONE [Suspect]
     Active Substance: AMIODARONE
     Dosage: UNKNOWN
     Route: 065
  5. PAROXETINE. [Suspect]
     Active Substance: PAROXETINE
     Dosage: UNKNOWN
     Route: 065
  6. OMEPRAZOLE. [Concomitant]
     Active Substance: OMEPRAZOLE
  7. ACENOCOUMAROL [Concomitant]
     Active Substance: ACENOCOUMAROL
  8. TRAMADOL. [Concomitant]
     Active Substance: TRAMADOL
  9. SULPIRIDE [Suspect]
     Active Substance: SULPIRIDE
     Dosage: UNKNOWN
     Route: 065
  10. SIMVASTATIN. [Concomitant]
     Active Substance: SIMVASTATIN
  11. PARACETAMOL [Concomitant]
     Active Substance: ACETAMINOPHEN
     Dosage: UNKNOWN
     Route: 065
  12. BISOPROLOL [Concomitant]
     Active Substance: BISOPROLOL
  13. INDAPAMIDE (NON-SPECIFIC) [Suspect]
     Active Substance: INDAPAMIDE
     Dosage: UNKNOWN
     Route: 065

REACTIONS (8)
  - Cardio-respiratory arrest [Unknown]
  - Torsade de pointes [Unknown]
  - Ventricular fibrillation [Unknown]
  - Hypomagnesaemia [None]
  - Hypocalcaemia [None]
  - Ventricular extrasystoles [None]
  - Electrocardiogram QT prolonged [Unknown]
  - Atrial fibrillation [None]
